FAERS Safety Report 5911517-2 (Version None)
Quarter: 2008Q4

REPORT INFORMATION
  Report Type: 
  Country: None (occurrence: None)
  Receive Date: 20081002
  Receipt Date: 20080924
  Transmission Date: 20090506
  Serious: Yes (Death, Hospitalization)
  Sender: FDA-Public Use
  Company Number: 2008AL010734

PATIENT
  Age: 73 Year
  Sex: Female
  Weight: 75.2971 kg

DRUGS (14)
  1. DIGOXIN [Suspect]
     Indication: CARDIAC DISORDER
     Dosage: 0.25MG, DAILY, PO
     Route: 048
  2. POTASSIUM CHLORIDE [Concomitant]
  3. METOPROLOL TARTRATE [Concomitant]
  4. ARIMIDEX [Concomitant]
  5. DIOVAN [Concomitant]
  6. DYAZIDE [Concomitant]
  7. ASPIRIN [Concomitant]
  8. LASIX [Concomitant]
  9. COREG [Concomitant]
  10. SPIRONOLACTONE [Concomitant]
  11. ALLOPURINOL [Concomitant]
  12. FEOSOL [Concomitant]
  13. AMIODARONE [Concomitant]
  14. FERROUS SULFATE [Concomitant]

REACTIONS (45)
  - ANXIETY [None]
  - ASCITES [None]
  - ASTHENIA [None]
  - BREATH SOUNDS ABNORMAL [None]
  - BUNDLE BRANCH BLOCK RIGHT [None]
  - CARDIAC FAILURE CONGESTIVE [None]
  - CARDIAC MURMUR [None]
  - CARDIOACTIVE DRUG LEVEL INCREASED [None]
  - CONDITION AGGRAVATED [None]
  - CREPITATIONS [None]
  - DEHYDRATION [None]
  - DIALYSIS [None]
  - DISEASE COMPLICATION [None]
  - DYSPNOEA [None]
  - ELECTROCARDIOGRAM ABNORMAL [None]
  - EXERCISE TOLERANCE DECREASED [None]
  - FALL [None]
  - GASTROENTERITIS [None]
  - HYPERKALAEMIA [None]
  - HYPERTENSION [None]
  - HYPERTENSIVE HEART DISEASE [None]
  - HYPOXIA [None]
  - INFLUENZA [None]
  - LEFT VENTRICULAR DYSFUNCTION [None]
  - MITRAL VALVE INCOMPETENCE [None]
  - NASOPHARYNGITIS [None]
  - OEDEMA PERIPHERAL [None]
  - ORTHOPNOEA [None]
  - PAIN [None]
  - PEDAL PULSE DECREASED [None]
  - PIGMENTATION DISORDER [None]
  - PLEURAL EFFUSION [None]
  - POLYCYTHAEMIA [None]
  - QRS AXIS ABNORMAL [None]
  - RALES [None]
  - RENAL CYST [None]
  - RENAL FAILURE ACUTE [None]
  - RESTLESSNESS [None]
  - SKIN ATROPHY [None]
  - SYNCOPE [None]
  - THERAPEUTIC AGENT TOXICITY [None]
  - TRICUSPID VALVE INCOMPETENCE [None]
  - VASODILATATION [None]
  - WEIGHT DECREASED [None]
  - WEIGHT INCREASED [None]
